FAERS Safety Report 9778792 (Version 1)
Quarter: 2013Q4

REPORT INFORMATION
  Report Type: Spontaneous
  Country: US (occurrence: US)
  Receive Date: 20131223
  Receipt Date: 20131223
  Transmission Date: 20140711
  Serious: No
  Sender: FDA-Public Use
  Company Number: US-GE HEALTHCARE MEDICAL DIAGNOSTICS-OMPQ-PR-1311S-1314

PATIENT
  Age: 42 Year
  Sex: Female

DRUGS (2)
  1. OMNIPAQUE [Suspect]
     Indication: ARTHRALGIA
     Route: 014
     Dates: start: 20131112, end: 20131112
  2. OMNIPAQUE [Suspect]
     Indication: DIAGNOSTIC PROCEDURE

REACTIONS (2)
  - Loss of consciousness [Recovered/Resolved]
  - Dyspnoea [Recovered/Resolved]
